FAERS Safety Report 6748075-9 (Version None)
Quarter: 2010Q2

REPORT INFORMATION
  Report Type: 
  Country: None (occurrence: None)
  Receive Date: 20100531
  Receipt Date: 20100517
  Transmission Date: 20101027
  Serious: Yes (Other)
  Sender: FDA-Public Use
  Company Number: US-ASTRAZENECA-2006UW03014

PATIENT
  Age: 52 Year
  Sex: Male
  Weight: 115.2 kg

DRUGS (13)
  1. SEROQUEL [Suspect]
     Indication: DEPRESSION
     Route: 048
     Dates: start: 20020101
  2. SEROQUEL [Suspect]
     Route: 048
     Dates: start: 20041016
  3. REMRON [Concomitant]
     Dates: start: 20050101
  4. LEXOPRO [Concomitant]
     Dates: start: 20041016
  5. LEXOPRO [Concomitant]
     Dates: start: 20050101
  6. CATAPRES-TTS-1 [Concomitant]
     Dosage: ONE EVERY WEEK
     Dates: start: 20041016
  7. LASIX [Concomitant]
     Dates: start: 20041016
  8. GLIPIZIDE [Concomitant]
  9. MIRTAZAPINE [Concomitant]
     Dates: start: 20041016
  10. NEURONTIN [Concomitant]
     Dates: start: 20041016
  11. GLUCOPHAGE [Concomitant]
     Dates: start: 20041016
  12. MONOPRIL [Concomitant]
     Dates: start: 20041016
  13. COREG [Concomitant]
     Dates: start: 20041016

REACTIONS (5)
  - BLOOD TRIGLYCERIDES INCREASED [None]
  - DIABETES MELLITUS INADEQUATE CONTROL [None]
  - NEUROPATHY PERIPHERAL [None]
  - PANCREATITIS [None]
  - WEIGHT INCREASED [None]
